FAERS Safety Report 5530732-3 (Version None)
Quarter: 2007Q4

REPORT INFORMATION
  Report Type: 
  Country: None (occurrence: None)
  Receive Date: 20071130
  Receipt Date: 20070618
  Transmission Date: 20080405
  Serious: No
  Sender: FDA-Public Use
  Company Number: US-BRISTOL-MYERS SQUIBB COMPANY-13817804

PATIENT
  Age: 39 Year
  Sex: Female
  Weight: 2 kg

DRUGS (2)
  1. KENALOG [Suspect]
     Indication: SWELLING
     Route: 030
     Dates: start: 20070614, end: 20070614
  2. CEPHALEXIN [Concomitant]
     Indication: INFECTION
     Dates: start: 20070612

REACTIONS (2)
  - PRURITUS [None]
  - URTICARIA [None]
